FAERS Safety Report 9344817 (Version 1)
Quarter: 2013Q2

REPORT INFORMATION
  Report Type: Spontaneous
  Country: US (occurrence: US)
  Receive Date: 20130612
  Receipt Date: 20130612
  Transmission Date: 20140414
  Serious: Yes (Other)
  Sender: FDA-Public Use
  Company Number: US-GLAXOSMITHKLINE-A1026175A

PATIENT
  Age: 53 Year
  Sex: Male

DRUGS (5)
  1. ADVAIR [Suspect]
     Indication: CHRONIC OBSTRUCTIVE PULMONARY DISEASE
     Dosage: 1PUFF TWICE PER DAY
     Route: 055
  2. PROVENTIL [Concomitant]
  3. ALBUTEROL + IPRATROPIUM BROMIDE [Concomitant]
  4. ASPIRIN [Concomitant]
  5. POTASSIUM GLUCONATE [Concomitant]

REACTIONS (4)
  - Pulmonary congestion [Recovering/Resolving]
  - Asthenia [Recovering/Resolving]
  - Abnormal dreams [Recovering/Resolving]
  - Therapeutic response unexpected [Recovering/Resolving]
